FAERS Safety Report 13940773 (Version 1)
Quarter: 2017Q3

REPORT INFORMATION
  Report Type: Spontaneous
  Country: PE (occurrence: PE)
  Receive Date: 20170906
  Receipt Date: 20170906
  Transmission Date: 20171127
  Serious: Yes (Other)
  Sender: FDA-Public Use
  Company Number: PE-UCBSA-2017035118

PATIENT
  Age: 11 Year
  Sex: Female
  Weight: 34 kg

DRUGS (2)
  1. KEPPRA [Suspect]
     Active Substance: LEVETIRACETAM
     Dosage: 2X/DAY (BID); 1 DF IN THE MORNING AND 1.5 DF AT EVENING
     Route: 048
     Dates: start: 201708
  2. KEPPRA [Suspect]
     Active Substance: LEVETIRACETAM
     Indication: PRODUCT USED FOR UNKNOWN INDICATION
     Dosage: 0.5 DF, 2X/DAY (BID)
     Route: 048
     Dates: start: 201703, end: 201708

REACTIONS (6)
  - Weight increased [Unknown]
  - Seizure [Unknown]
  - Headache [Unknown]
  - Sleep disorder [Unknown]
  - Drug ineffective [Unknown]
  - Wrong technique in product usage process [Unknown]

NARRATIVE: CASE EVENT DATE: 2017
